FAERS Safety Report 9314139 (Version 1)
Quarter: 2013Q2

REPORT INFORMATION
  Report Type: Spontaneous
  Country: US (occurrence: US)
  Receive Date: 20130529
  Receipt Date: 20130529
  Transmission Date: 20140414
  Serious: Yes (Other)
  Sender: FDA-Public Use
  Company Number: US-JNJFOC-20130511947

PATIENT
  Sex: Male

DRUGS (4)
  1. INVEGA SUSTENNA [Suspect]
     Indication: SCHIZOPHRENIA
     Route: 030
     Dates: start: 2013
  2. INVEGA [Suspect]
     Indication: SCHIZOPHRENIA
     Route: 048
  3. LITHIUM [Concomitant]
     Route: 065
  4. CELEXA [Concomitant]
     Route: 065

REACTIONS (1)
  - Hypersensitivity [Unknown]
